FAERS Safety Report 6976573-1 (Version None)
Quarter: 2010Q3

REPORT INFORMATION
  Report Type: 
  Country: None (occurrence: None)
  Receive Date: 20100910
  Receipt Date: 20100831
  Transmission Date: 20110219
  Serious: Yes (Hospitalization)
  Sender: FDA-Public Use
  Company Number: US-PFIZER INC-2009222255

PATIENT
  Sex: Female

DRUGS (2)
  1. NEURONTIN [Suspect]
     Indication: NEUROPATHY PERIPHERAL
     Dosage: UNK
     Dates: start: 19940101
  2. LIPITOR [Suspect]
     Dosage: UNK

REACTIONS (3)
  - GAIT DISTURBANCE [None]
  - MALAISE [None]
  - NEUROPATHY PERIPHERAL [None]
